FAERS Safety Report 17793795 (Version 1)
Quarter: 2020Q2

REPORT INFORMATION
  Report Type: Spontaneous
  Country: US (occurrence: US)
  Receive Date: 20200515
  Receipt Date: 20200515
  Transmission Date: 20200714
  Serious: No
  Sender: FDA-Public Use
  Company Number: US-JNJFOC-20200517791

PATIENT
  Sex: Male
  Weight: 59.93 kg

DRUGS (1)
  1. BALVERSA [Suspect]
     Active Substance: ERDAFITINIB
     Indication: PANCREATIC CARCINOMA
     Route: 065
     Dates: start: 20200507

REACTIONS (2)
  - Off label use [Unknown]
  - Bone pain [Unknown]
